FAERS Safety Report 13700985 (Version 1)
Quarter: 2017Q2

REPORT INFORMATION
  Report Type: Spontaneous
  Country: US (occurrence: US)
  Receive Date: 20170628
  Receipt Date: 20170628
  Transmission Date: 20170830
  Serious: Yes (Hospitalization)
  Sender: FDA-Public Use
  Company Number: None

PATIENT
  Age: 59 Year
  Sex: Male
  Weight: 126 kg

DRUGS (1)
  1. ISOTRETINOIN [Suspect]
     Active Substance: ISOTRETINOIN
     Dosage: 80 NGM TWICE A DAY

REACTIONS (3)
  - Headache [None]
  - Mental status changes [None]
  - Hallucination, visual [None]

NARRATIVE: CASE EVENT DATE: 20170605
